FAERS Safety Report 4395980-7 (Version None)
Quarter: 2004Q3

REPORT INFORMATION
  Report Type: 
  Country: None (occurrence: None)
  Receive Date: 20040707
  Receipt Date: 20040621
  Transmission Date: 20050211
  Serious: Yes (Hospitalization, Other)
  Sender: FDA-Public Use
  Company Number: 197821

PATIENT
  Age: 47 Year
  Sex: Female

DRUGS (6)
  1. AVONEX [Suspect]
     Indication: MULTIPLE SCLEROSIS
     Dosage: 30 MCG QW IM
     Route: 030
     Dates: start: 20040429
  2. SERTRALINE HCL [Concomitant]
  3. PRAMIPEXOLE [Concomitant]
  4. LOSEC [Concomitant]
  5. INFUFES [Concomitant]
  6. IMOVANE [Concomitant]

REACTIONS (6)
  - BACK PAIN [None]
  - CARDIAC FAILURE CONGESTIVE [None]
  - CARDIOMEGALY [None]
  - HYPERVENTILATION [None]
  - NECK PAIN [None]
  - ROAD TRAFFIC ACCIDENT [None]
